FAERS Safety Report 19025320 (Version 1)
Quarter: 2021Q1

REPORT INFORMATION
  Report Type: Spontaneous
  Country: RU (occurrence: RU)
  Receive Date: 20210318
  Receipt Date: 20210318
  Transmission Date: 20210420
  Serious: Yes (Other)
  Sender: FDA-Public Use
  Company Number: NVSC2021RU045265

PATIENT
  Sex: Female

DRUGS (4)
  1. FULVESTRANT. [Concomitant]
     Active Substance: FULVESTRANT
     Indication: PRODUCT USED FOR UNKNOWN INDICATION
     Dosage: UNK
     Route: 065
  2. RISARG [RIBOCICLIB SUCCINATE] [Suspect]
     Active Substance: RIBOCICLIB SUCCINATE
     Dosage: 400 MG (IN THREE WEEKS FROM DISCONTINUATION)
     Route: 065
  3. DENOSUMAB [Concomitant]
     Active Substance: DENOSUMAB
     Indication: PRODUCT USED FOR UNKNOWN INDICATION
     Dosage: UNK
     Route: 065
  4. RISARG [RIBOCICLIB SUCCINATE] [Suspect]
     Active Substance: RIBOCICLIB SUCCINATE
     Indication: HORMONE RECEPTOR POSITIVE BREAST CANCER
     Dosage: 600 MG, QD
     Route: 065
     Dates: start: 20201105, end: 20201222

REACTIONS (4)
  - Neutropenia [Unknown]
  - Hydrothorax [Recovered/Resolved]
  - Erysipelas [Recovered/Resolved]
  - Cardiac failure [Unknown]
